FAERS Safety Report 11155764 (Version 1)
Quarter: 2015Q2

REPORT INFORMATION
  Report Type: Spontaneous
  Country: US (occurrence: US)
  Receive Date: 20150602
  Receipt Date: 20150602
  Transmission Date: 20150821
  Serious: No
  Sender: FDA-Public Use
  Company Number: US-BAYER-2015-292243

PATIENT
  Age: 85 Year
  Sex: Female
  Weight: 74.83 kg

DRUGS (5)
  1. LOSARTAN [Concomitant]
     Active Substance: LOSARTAN
     Dosage: UNK
  2. TRAMADOL [Concomitant]
     Active Substance: TRAMADOL
     Dosage: UNK
  3. MIRALAX [Suspect]
     Active Substance: POLYETHYLENE GLYCOL 3350
     Indication: CONSTIPATION
     Dosage: UNK, QD
     Route: 048
     Dates: start: 2005
  4. SYMBICORT [Concomitant]
     Active Substance: BUDESONIDE\FORMOTEROL FUMARATE DIHYDRATE
     Dosage: UNK
  5. TYLENOL WITH CODEINE [Concomitant]
     Active Substance: ACETAMINOPHEN\CODEINE PHOSPHATE
     Dosage: UNK

REACTIONS (1)
  - Incorrect drug administration duration [None]

NARRATIVE: CASE EVENT DATE: 2005
